FAERS Safety Report 21033263 (Version 2)
Quarter: 2023Q1

REPORT INFORMATION
  Report Type: Other
  Country: JP (occurrence: JP)
  Receive Date: 20220701
  Receipt Date: 20230127
  Transmission Date: 20230418
  Serious: Yes (Hospitalization)
  Sender: FDA-Public Use
  Company Number: JP-CHUGAI-2022021825

PATIENT
  Age: 9 Year
  Sex: Female

DRUGS (1)
  1. RISDIPLAM [Suspect]
     Active Substance: RISDIPLAM
     Indication: Spinal muscular atrophy
     Dosage: UNK
     Route: 048
     Dates: start: 20220520

REACTIONS (3)
  - Tachycardia [Unknown]
  - Vomiting [Unknown]
  - Ileus [Unknown]

NARRATIVE: CASE EVENT DATE: 20220530
